FAERS Safety Report 14532300 (Version 15)
Quarter: 2018Q2

REPORT INFORMATION
  Report Type: Report from Study
  Country: FR (occurrence: FR)
  Receive Date: 20180214
  Receipt Date: 20180514
  Transmission Date: 20180711
  Serious: Yes (Death, Life-Threatening, Hospitalization)
  Sender: FDA-Public Use
  Company Number: PHHO2017FR012882

PATIENT
  Weight: 99 kg

DRUGS (10)
  1. ELTROMBOPAG [Suspect]
     Active Substance: ELTROMBOPAG
     Indication: APLASTIC ANAEMIA
     Dosage: 150 MG, QD
     Route: 048
     Dates: start: 20160422, end: 20160706
  2. CYCLOSPORINE A [Suspect]
     Active Substance: CYCLOSPORINE
     Indication: APLASTIC ANAEMIA
     Dosage: 330 MG, BID
     Route: 048
     Dates: start: 20160408
  3. OMEPRAZOLE. [Concomitant]
     Active Substance: OMEPRAZOLE
     Indication: GASTROOESOPHAGEAL REFLUX DISEASE
  4. REVOLADE [Suspect]
     Active Substance: ELTROMBOPAG
     Indication: APLASTIC ANAEMIA
     Dosage: 150 MG, QD
     Route: 048
     Dates: start: 20170214
  5. ZELITREX [Concomitant]
     Active Substance: VALACYCLOVIR HYDROCHLORIDE
     Indication: INFECTION PROPHYLAXIS
     Dosage: 500 MG, BID
     Route: 048
     Dates: start: 20160523
  6. RIFINAH [Concomitant]
     Active Substance: ISONIAZID\RIFAMPIN
     Indication: PULMONARY TUBERCULOSIS
     Dosage: 300 MG
     Route: 048
  7. CERITINIB [Concomitant]
     Active Substance: CERITINIB
     Indication: PRODUCT USED FOR UNKNOWN INDICATION
     Dosage: 800 MG, BID
     Route: 048
  8. VITAMIN B1 AND B6 [Concomitant]
     Active Substance: PYRIDOXINE HYDROCHLORIDE\THIAMINE HYDROCHLORIDE
     Indication: PRODUCT USED FOR UNKNOWN INDICATION
     Dosage: 1 CAPSULE, QD
     Route: 048
     Dates: start: 20170905
  9. OMEPRAZOLE. [Concomitant]
     Active Substance: OMEPRAZOLE
     Indication: HYPERCHLORHYDRIA
     Dosage: 20 MG, QD
     Route: 048
     Dates: start: 20161209
  10. ANTITHYMOCYTE IMMUNOGLOBULIN [Suspect]
     Active Substance: THYMOCYTE IMMUNE GLOBULIN NOS
     Indication: APLASTIC ANAEMIA
     Dosage: UNK
     Route: 065
     Dates: start: 20160408, end: 20160411

REACTIONS (15)
  - Asthenia [Not Recovered/Not Resolved]
  - Bacterial infection [Recovered/Resolved]
  - General physical health deterioration [Not Recovered/Not Resolved]
  - Multiple organ dysfunction syndrome [Fatal]
  - Acute respiratory failure [Fatal]
  - Oesophagitis [Recovering/Resolving]
  - Cerebral thrombosis [Fatal]
  - Confusional state [Recovering/Resolving]
  - Portal vein thrombosis [Fatal]
  - Mesenteric vein thrombosis [Fatal]
  - Renal failure [Not Recovered/Not Resolved]
  - Depressed level of consciousness [Recovering/Resolving]
  - Thrombocytopenia [Not Recovered/Not Resolved]
  - Pleural effusion [Not Recovered/Not Resolved]
  - Tuberculous pleurisy [Not Recovered/Not Resolved]

NARRATIVE: CASE EVENT DATE: 20170825
